FAERS Safety Report 22163936 (Version 1)
Quarter: 2023Q2

REPORT INFORMATION
  Report Type: Spontaneous
  Country: US (occurrence: US)
  Receive Date: 20230402
  Receipt Date: 20230402
  Transmission Date: 20230722
  Serious: No
  Sender: FDA-Public Use
  Company Number: US-JNJFOC-20230366336

PATIENT
  Sex: Male

DRUGS (1)
  1. MENS ROGAINE EXTRA STRENGTH [Suspect]
     Active Substance: MINOXIDIL
     Indication: Product used for unknown indication
     Dosage: DOSE: SOMETIME USED PRODUCT A LOT/PUT PRODUCT IN HANDS AND PUT IT ON SCALP
     Route: 065

REACTIONS (2)
  - Application site discomfort [Unknown]
  - Incorrect dose administered [Unknown]
